FAERS Safety Report 10418031 (Version 1)
Quarter: 2014Q3

REPORT INFORMATION
  Report Type: Spontaneous
  Country: US (occurrence: None)
  Receive Date: 20140828
  Receipt Date: 20140828
  Transmission Date: 20150326
  Serious: Yes (Hospitalization)
  Sender: FDA-Public Use
  Company Number: None

PATIENT
  Age: 72 Year
  Sex: Male
  Weight: 105 kg

DRUGS (2)
  1. LITHIUM [Suspect]
     Active Substance: LITHIUM CARBONATE
     Indication: BIPOLAR I DISORDER
     Route: 050
     Dates: start: 20140316, end: 20140606
  2. RAMUCIRUMAB [Suspect]
     Active Substance: RAMUCIRUMAB
     Indication: OESOPHAGEAL CARCINOMA
     Dosage: 574 MG ?OTHER ?IV
     Route: 042
     Dates: start: 20140618, end: 20140702

REACTIONS (6)
  - Antipsychotic drug level above therapeutic [None]
  - Sedation [None]
  - Mental status changes [None]
  - Hyponatraemia [None]
  - Confusional state [None]
  - Toxicity to various agents [None]

NARRATIVE: CASE EVENT DATE: 20140706
